FAERS Safety Report 20212538 (Version 1)
Quarter: 2021Q4

REPORT INFORMATION
  Report Type: Report from Study
  Country: US (occurrence: US)
  Receive Date: 20211221
  Receipt Date: 20211221
  Transmission Date: 20220304
  Serious: Yes (Hospitalization)
  Sender: FDA-Public Use
  Company Number: US-ABBVIE-21K-163-4203412-00

PATIENT
  Age: 55 Year
  Sex: Female

DRUGS (1)
  1. SKYRIZI [Suspect]
     Active Substance: RISANKIZUMAB-RZAA
     Indication: Psoriasis
     Dosage: WEEK 0, WEEK 4, EVERY 12 WEEKS THEREAFTER
     Route: 058
     Dates: start: 202109

REACTIONS (8)
  - Spinal decompression [Unknown]
  - Intervertebral disc operation [Unknown]
  - Mobility decreased [Unknown]
  - Gait disturbance [Unknown]
  - Stress [Unknown]
  - Back pain [Unknown]
  - Psoriasis [Unknown]
  - Fatigue [Unknown]

NARRATIVE: CASE EVENT DATE: 20211209
